FAERS Safety Report 5290348-3 (Version None)
Quarter: 2007Q2

REPORT INFORMATION
  Report Type: 
  Country: None (occurrence: None)
  Receive Date: 20070402
  Receipt Date: 20070328
  Transmission Date: 20071010
  Serious: Yes (Death, Other)
  Sender: FDA-Public Use
  Company Number: S07-CAN-01303-01

PATIENT
  Age: 44 Year
  Sex: Female

DRUGS (4)
  1. CELEXA [Suspect]
     Dosage: 60 MG
  2. EFFEXOR XR [Suspect]
     Dosage: 37.5 MG
  3. CLONAZEPAM [Concomitant]
  4. DEXTROAMPETAMINE SULFATE TAB [Concomitant]

REACTIONS (2)
  - COMPLETED SUICIDE [None]
  - THINKING ABNORMAL [None]
